FAERS Safety Report 22080441 (Version 1)
Quarter: 2023Q1

REPORT INFORMATION
  Report Type: Spontaneous
  Country: US (occurrence: US)
  Receive Date: 20230309
  Receipt Date: 20230309
  Transmission Date: 20230418
  Serious: No
  Sender: FDA-Public Use
  Company Number: US-MYOVANT SCIENCES GMBH-2022MYSCI1200004

PATIENT
  Age: 70 Year
  Sex: Male

DRUGS (5)
  1. ORGOVYX [Suspect]
     Active Substance: RELUGOLIX
     Indication: Prostate cancer
     Dosage: 360 MILLIGRAM, ONE TIME DOSE
     Route: 048
     Dates: start: 20221123, end: 20221123
  2. ORGOVYX [Suspect]
     Active Substance: RELUGOLIX
     Dosage: 120 MILLIGRAM, QD
     Route: 048
     Dates: start: 20221124
  3. FLOMAX [Suspect]
     Active Substance: TAMSULOSIN HYDROCHLORIDE
     Indication: Prostate cancer
     Dosage: UNK, QD
     Route: 065
     Dates: start: 20221124
  4. CIALIS [Suspect]
     Active Substance: TADALAFIL
     Indication: Prostate cancer
     Dosage: UNK, QD
     Route: 065
     Dates: start: 20221124
  5. HYZAAR [Concomitant]
     Active Substance: HYDROCHLOROTHIAZIDE\LOSARTAN POTASSIUM
     Indication: Blood pressure abnormal
     Dosage: UNK, QD
     Route: 065
     Dates: start: 202209

REACTIONS (1)
  - Dizziness postural [Unknown]
